FAERS Safety Report 20089553 (Version 3)
Quarter: 2022Q2

REPORT INFORMATION
  Report Type: Report from Study
  Country: LB (occurrence: LB)
  Receive Date: 20211119
  Receipt Date: 20220408
  Transmission Date: 20220721
  Serious: Yes (Hospitalization)
  Sender: FDA-Public Use
  Company Number: LB-ABBVIE-21K-093-3848670-00

PATIENT
  Age: 25 Year
  Sex: Female
  Weight: 100 kg

DRUGS (2)
  1. HUMIRA [Suspect]
     Active Substance: ADALIMUMAB
     Indication: Psoriasis
     Route: 058
     Dates: end: 2016
  2. METHOTREXATE SODIUM [Concomitant]
     Active Substance: METHOTREXATE SODIUM
     Indication: Product used for unknown indication

REACTIONS (12)
  - Fatigue [Recovered/Resolved]
  - Infection [Recovered/Resolved]
  - Pyrexia [Recovered/Resolved]
  - Maternal exposure during pregnancy [Unknown]
  - Irritable bowel syndrome [Not Recovered/Not Resolved]
  - Tooth loss [Recovering/Resolving]
  - Weight increased [Not Recovered/Not Resolved]
  - Live birth [Unknown]
  - Stress [Not Recovered/Not Resolved]
  - Alopecia [Recovering/Resolving]
  - Psoriasis [Recovered/Resolved]
  - Psoriasis [Not Recovered/Not Resolved]

NARRATIVE: CASE EVENT DATE: 20160101
